FAERS Safety Report 9556433 (Version 1)
Quarter: 2013Q3

REPORT INFORMATION
  Report Type: Spontaneous
  Country: FR (occurrence: FR)
  Receive Date: 20130926
  Receipt Date: 20130926
  Transmission Date: 20140515
  Serious: Yes (Other)
  Sender: FDA-Public Use
  Company Number: FR-UCBSA-098063

PATIENT
  Age: 67 Year
  Sex: Male

DRUGS (12)
  1. KEPPRA [Suspect]
     Indication: POST-TRAUMATIC EPILEPSY
     Route: 042
     Dates: start: 20130807, end: 20130812
  2. TAZOCILLINE [Suspect]
     Indication: PNEUMONIA ASPIRATION
     Dosage: STRENGTH: 4G/500MG, SOLUTION FOR PERFUSION POWDER
     Route: 042
     Dates: start: 201308, end: 20130817
  3. AUGMENTIN [Concomitant]
     Indication: PNEUMONIA ASPIRATION
     Dosage: STRENGTH:1G/200MG ADULTS, POWDER FOR INJECTION SOLUTION
     Route: 042
     Dates: start: 20130807, end: 20130808
  4. NORADRENALINE [Concomitant]
     Indication: PNEUMONIA ASPIRATION
     Dosage: UPTO 1MG/HOUR
     Route: 042
     Dates: start: 20130807, end: 20130810
  5. SUFENTANYL [Concomitant]
     Indication: SEDATION
     Route: 042
     Dates: start: 20130807, end: 20130812
  6. CORDARONE [Concomitant]
     Dosage: LONG TERM
     Route: 048
  7. OGASTRO [Concomitant]
     Dosage: DAILY DOSE: 20 MG
     Route: 048
     Dates: start: 20130807
  8. CARDENSIEL [Concomitant]
     Dosage: STRENGTH: 1.25 MG
     Route: 048
     Dates: start: 20130807
  9. PRAVASTATINE [Concomitant]
     Indication: HYPERCHOLESTEROLAEMIA
     Dosage: STRENGTH: 20 MG, DIVISIBLE TABLETS
     Route: 048
     Dates: start: 20130807
  10. OCTAPLEX [Concomitant]
     Indication: ANTICOAGULANT THERAPY
     Dosage: POWDER AND SOLVENT FOR INJECTABLE SOLUTION, DAILY DOSE: 2000 UI
     Route: 042
     Dates: start: 20130807, end: 20130807
  11. VITAMINE K1 [Concomitant]
     Indication: ANTICOAGULANT THERAPY
     Dosage: STRENGTH: 10 MG/1ML, ORAL AND INJECTABLE SOLUTION
     Route: 042
     Dates: start: 20130807, end: 20130807
  12. MIDAZOLAM [Concomitant]
     Indication: SEDATION
     Dosage: DAILY DOSE: 15 MG
     Route: 042
     Dates: start: 20130807, end: 20130812

REACTIONS (1)
  - Thrombocytopenia [Recovered/Resolved]
